FAERS Safety Report 25611908 (Version 1)
Quarter: 2025Q3

REPORT INFORMATION
  Report Type: Spontaneous
  Country: MY (occurrence: MY)
  Receive Date: 20250728
  Receipt Date: 20250728
  Transmission Date: 20251020
  Serious: Yes (Hospitalization)
  Sender: OTSUKA
  Company Number: MY-MMM-Otsuka-CX1JQPHU

PATIENT

DRUGS (2)
  1. SAMSCA [Suspect]
     Active Substance: TOLVAPTAN
     Indication: Product used for unknown indication
     Dosage: 15 MG, DAILY (FOR 7 DAYS)
     Route: 065
     Dates: start: 202507, end: 202507
  2. SAMSCA [Suspect]
     Active Substance: TOLVAPTAN
     Dosage: 15 MG, QD (PRESCRIBED A 30-DAY OUTPATIENT COURSE/TOOK 1 TABLET)
     Route: 065
     Dates: start: 202507

REACTIONS (2)
  - Hepatitis acute [Unknown]
  - Acute kidney injury [Unknown]

NARRATIVE: CASE EVENT DATE: 20250701
